FAERS Safety Report 12142073 (Version 1)
Quarter: 2016Q1

REPORT INFORMATION
  Report Type: Spontaneous
  Country: DE (occurrence: DE)
  Receive Date: 20160303
  Receipt Date: 20160303
  Transmission Date: 20160526
  Serious: Yes (Other)
  Sender: FDA-Public Use
  Company Number: DE-BAYER-2016-042675

PATIENT
  Age: 84 Year
  Sex: Female

DRUGS (2)
  1. ASPIRIN PROTECT 300 [Suspect]
     Active Substance: ASPIRIN
     Indication: TRANSIENT ISCHAEMIC ATTACK
     Dosage: 300 MG, UNK
  2. ASPIRIN PROTECT 100 [Suspect]
     Active Substance: ASPIRIN
     Dosage: 100 MG, UNK

REACTIONS (6)
  - Atrial fibrillation [None]
  - Blood uric acid increased [None]
  - Diarrhoea [None]
  - Diverticulum [None]
  - Cerebrovascular accident [None]
  - Jejunal perforation [None]

NARRATIVE: CASE EVENT DATE: 2006
